FAERS Safety Report 5434539-7 (Version None)
Quarter: 2007Q3

REPORT INFORMATION
  Report Type: 
  Country: None (occurrence: None)
  Receive Date: 20070828
  Receipt Date: 20070828
  Transmission Date: 20080115
  Serious: No
  Sender: FDA-Public Use
  Company Number: None

PATIENT
  Sex: Female
  Weight: 37.4 kg

DRUGS (2)
  1. CARBOPLATIN [Suspect]
     Dosage: 754 MG
  2. TAXOL [Suspect]
     Dosage: 211 MG

REACTIONS (3)
  - ANAEMIA [None]
  - NEUTROPENIA [None]
  - THROMBOCYTOPENIA [None]
